FAERS Safety Report 9814488 (Version 1)
Quarter: 2014Q1

REPORT INFORMATION
  Report Type: Spontaneous
  Country: US (occurrence: US)
  Receive Date: 20140113
  Receipt Date: 20140113
  Transmission Date: 20141002
  Serious: No
  Sender: FDA-Public Use
  Company Number: US-BIOGENIDEC-2013BI055057

PATIENT
  Age: 60 Year
  Sex: Female
  Weight: 68 kg

DRUGS (9)
  1. TECFIDERA [Suspect]
     Indication: MULTIPLE SCLEROSIS
     Route: 048
  2. TECFIDERA [Suspect]
     Indication: MULTIPLE SCLEROSIS
     Route: 048
     Dates: end: 201309
  3. SINGULAR [Concomitant]
  4. NASONEX SPR [Concomitant]
  5. ECOTRIN ENTERIC COATED [Concomitant]
  6. LEVOTHYROXIN [Concomitant]
  7. CLARITIN [Concomitant]
  8. TYLENOL [Concomitant]
  9. PROBIOTIC [Concomitant]

REACTIONS (5)
  - Dizziness [Recovered/Resolved]
  - Gastric disorder [Recovered/Resolved]
  - Abdominal pain upper [Unknown]
  - Nausea [Unknown]
  - Vomiting [Unknown]
